FAERS Safety Report 10078810 (Version 1)
Quarter: 2014Q2

REPORT INFORMATION
  Report Type: Spontaneous
  Country: US (occurrence: None)
  Receive Date: 20140414
  Receipt Date: 20140414
  Transmission Date: 20141212
  Serious: Yes (Hospitalization)
  Sender: FDA-Public Use
  Company Number: None

PATIENT
  Age: 75 Year
  Sex: Male
  Weight: 89.45 kg

DRUGS (2)
  1. CARBOPLATIN [Suspect]
     Dates: end: 20140328
  2. DOCETAXEL [Suspect]
     Dates: end: 20140328

REACTIONS (5)
  - Febrile neutropenia [None]
  - Colitis [None]
  - Abdominal discomfort [None]
  - Diarrhoea [None]
  - Body temperature increased [None]
